FAERS Safety Report 8539008-3 (Version None)
Quarter: 2012Q3

REPORT INFORMATION
  Report Type: 
  Country: None (occurrence: None)
  Receive Date: 20120726
  Receipt Date: 20120722
  Transmission Date: 20120928
  Serious: Yes (Life-Threatening, Hospitalization)
  Sender: FDA-Public Use
  Company Number: PHHY2012VE055247

PATIENT
  Sex: Male

DRUGS (6)
  1. EXJADE [Suspect]
     Indication: SICKLE CELL ANAEMIA
     Dosage: 500 MG, UNK
     Route: 048
     Dates: start: 20120330
  2. BLOOD CELLS, PACKED HUMAN [Concomitant]
     Dates: start: 20120612
  3. BLOOD CELLS, PACKED HUMAN [Concomitant]
     Dates: start: 20120629
  4. BLOOD CELLS, PACKED HUMAN [Concomitant]
     Dates: start: 20120619
  5. EXJADE [Suspect]
     Indication: HAEMOSIDEROSIS
  6. BLOOD CELLS, PACKED HUMAN [Concomitant]
     Dates: start: 20120618

REACTIONS (1)
  - PAIN IN EXTREMITY [None]
